FAERS Safety Report 11648954 (Version 2)
Quarter: 2015Q4

REPORT INFORMATION
  Report Type: Spontaneous
  Country: US (occurrence: US)
  Receive Date: 20151021
  Receipt Date: 20151103
  Transmission Date: 20160304
  Serious: Yes (Other)
  Sender: FDA-Public Use
  Company Number: US-COVIS PHARMA S.A.R.L.-2015COV00141

PATIENT
  Age: 59 Year
  Sex: Female
  Weight: 59.86 kg

DRUGS (6)
  1. BETAPACE AF [Suspect]
     Active Substance: SOTALOL HYDROCHLORIDE
     Indication: ATRIAL FIBRILLATION
     Dosage: 160 MG, 2X/DAY
     Route: 048
     Dates: start: 2003, end: 20151006
  2. ASPIRIN. [Concomitant]
     Active Substance: ASPIRIN
     Dosage: 81 MG, 1X/DAY
     Route: 048
  3. ESTRACE [Concomitant]
     Active Substance: ESTRADIOL
     Dosage: 1 DOSAGE UNITS, 1X/DAY
     Route: 067
  4. TENORMIN [Concomitant]
     Active Substance: ATENOLOL
     Dosage: 25 MG, 1X/DAY AS NEEDED
     Route: 048
  5. LANOXIN [Concomitant]
     Active Substance: DIGOXIN
     Dosage: .375 ML, 1X/DAY
     Route: 048
  6. BETAPACE AF [Suspect]
     Active Substance: SOTALOL HYDROCHLORIDE
     Dosage: 80 MG, 1X/DAY
     Dates: start: 20151007

REACTIONS (5)
  - Feeling abnormal [Not Recovered/Not Resolved]
  - Bradycardia [None]
  - Drug ineffective [Not Recovered/Not Resolved]
  - Atrial fibrillation [Not Recovered/Not Resolved]
  - Product quality issue [None]

NARRATIVE: CASE EVENT DATE: 20150822
